FAERS Safety Report 7589476-9 (Version None)
Quarter: 2011Q3

REPORT INFORMATION
  Report Type: 
  Country: None (occurrence: None)
  Receive Date: 20110705
  Receipt Date: 20110630
  Transmission Date: 20111222
  Serious: Yes (Life-Threatening, Hospitalization)
  Sender: FDA-Public Use
  Company Number: US-ROCHE-782658

PATIENT
  Sex: Female
  Weight: 68.5 kg

DRUGS (3)
  1. BEVACIZUMAB [Suspect]
     Indication: OVARIAN EPITHELIAL CANCER
     Dosage: OVER 30 - 90 MINS LAST ADMINISTERED DOSE: 19 NOVEMBER 2010
     Route: 042
     Dates: start: 20101008
  2. PACLITAXEL [Suspect]
     Indication: OVARIAN EPITHELIAL CANCER
     Dosage: OVER 1 HOUR ON DAY 1, 8 AND 15 LAST ADMINISTERED DOSE: 03 JANUARY 0211 TOTAL DOSE: 419 MG
     Route: 042
     Dates: start: 20101008
  3. CARBOPLATIN [Suspect]
     Indication: OVARIAN EPITHELIAL CANCER
     Dosage: 6 AUC ON DAY 1 LAST ADMINISTERED DOSE: 03 JANUARY 0211 TOTAL DOSE: 151 MG
     Route: 042
     Dates: start: 20101008

REACTIONS (14)
  - WHITE BLOOD CELL COUNT DECREASED [None]
  - NEUTROPHIL COUNT DECREASED [None]
  - PELVIC INFECTION [None]
  - HYPERNATRAEMIA [None]
  - OESOPHAGITIS [None]
  - HYPOPHOSPHATAEMIA [None]
  - FEBRILE NEUTROPENIA [None]
  - HAEMOGLOBIN DECREASED [None]
  - NAUSEA [None]
  - HYPOKALAEMIA [None]
  - LARGE INTESTINE PERFORATION [None]
  - DEHYDRATION [None]
  - VOMITING [None]
  - PROTEINURIA [None]
